FAERS Safety Report 25059301 (Version 1)
Quarter: 2025Q1

REPORT INFORMATION
  Report Type: Spontaneous
  Country: US (occurrence: US)
  Receive Date: 20250310
  Receipt Date: 20250310
  Transmission Date: 20250409
  Serious: Yes (Hospitalization)
  Sender: MYLAN
  Company Number: US-MYLANLABS-2025M1018798

PATIENT
  Age: 31 Month
  Sex: Female

DRUGS (1)
  1. METHADONE [Suspect]
     Active Substance: METHADONE HYDROCHLORIDE
     Indication: Product used for unknown indication

REACTIONS (3)
  - Neurotoxicity [Recovering/Resolving]
  - Brain oedema [Recovering/Resolving]
  - Accidental exposure to product by child [Recovering/Resolving]
